FAERS Safety Report 12662861 (Version 1)
Quarter: 2016Q3

REPORT INFORMATION
  Report Type: Spontaneous
  Country: US (occurrence: US)
  Receive Date: 20160818
  Receipt Date: 20160818
  Transmission Date: 20161109
  Serious: Yes (Other)
  Sender: FDA-Public Use
  Company Number: US-STRIDES ARCOLAB LIMITED-2016SP010467

PATIENT

DRUGS (2)
  1. TACROLIMUS. [Suspect]
     Active Substance: TACROLIMUS
     Indication: IMMUNOSUPPRESSION
     Dosage: 2 MG, EVERY 12 HRS
  2. STRIBILD [Interacting]
     Active Substance: COBICISTAT\ELVITEGRAVIR\EMTRICITABINE\TENOFOVIR DISOPROXIL FUMARATE
     Indication: HIV INFECTION
     Dosage: ONE PILL, QD

REACTIONS (10)
  - Toxicity to various agents [Unknown]
  - Acute kidney injury [Unknown]
  - Hyperkalaemia [Unknown]
  - Drug interaction [Unknown]
  - Headache [Unknown]
  - Urine output decreased [Unknown]
  - Insomnia [Unknown]
  - Abdominal pain upper [Unknown]
  - Drug level above therapeutic [Recovered/Resolved]
  - Blood creatinine increased [Recovered/Resolved]
